FAERS Safety Report 9201085 (Version 2)
Quarter: 2013Q2

REPORT INFORMATION
  Report Type: Spontaneous
  Country: US (occurrence: US)
  Receive Date: 20130401
  Receipt Date: 20130404
  Transmission Date: 20140414
  Serious: No
  Sender: FDA-Public Use
  Company Number: US-PFIZER INC-2013098675

PATIENT
  Age: 9 Year
  Sex: Male
  Weight: 29 kg

DRUGS (1)
  1. GENOTROPIN [Suspect]
     Indication: GROWTH HORMONE DEFICIENCY
     Dosage: 1 MG, 1X/DAY
     Route: 058
     Dates: start: 201301

REACTIONS (1)
  - Injection site pain [Not Recovered/Not Resolved]
